FAERS Safety Report 21451593 (Version 1)
Quarter: 2022Q4

REPORT INFORMATION
  Report Type: Spontaneous
  Country: FR (occurrence: FR)
  Receive Date: 20221013
  Receipt Date: 20221013
  Transmission Date: 20230113
  Serious: Yes (Death)
  Sender: FDA-Public Use
  Company Number: FR-MYLANLABS-2022M1113950

PATIENT
  Age: 58 Year
  Sex: Female

DRUGS (7)
  1. GEMCITABINE [Suspect]
     Active Substance: GEMCITABINE
     Indication: Pancreatic carcinoma metastatic
     Dosage: UNK, CYCLE,8 CYCLES OF GEMCITABINE
     Route: 065
  2. PACLITAXEL [Suspect]
     Active Substance: PACLITAXEL
     Indication: Pancreatic carcinoma metastatic
     Dosage: UNK, CYCLE, 8 CYCLES OF PACLITAXEL
     Route: 065
  3. FLUOROURACIL [Suspect]
     Active Substance: FLUOROURACIL
     Indication: Pancreatic carcinoma metastatic
     Dosage: UNK, CYCLE, 12 CYCLES OF FLUOROURACIL
     Route: 065
  4. IRINOTECAN [Suspect]
     Active Substance: IRINOTECAN
     Indication: Pancreatic carcinoma metastatic
     Dosage: UNK, CYCLE, 12 CYCLES OF IRINOTECAN
     Route: 065
  5. OXALIPLATIN [Suspect]
     Active Substance: OXALIPLATIN
     Indication: Pancreatic carcinoma metastatic
     Dosage: UNK, CYCLE, 12 CYCLES OF OXALIPLATIN
     Route: 065
  6. LEUCOVORIN [Suspect]
     Active Substance: LEUCOVORIN
     Indication: Pancreatic carcinoma metastatic
     Dosage: UNK, CYCLE, 12 CYCLES OF FOLINIC ACID
     Route: 065
  7. DEXAMETHASONE [Concomitant]
     Active Substance: DEXAMETHASONE
     Indication: Eosinophilia
     Dosage: UNK
     Route: 065

REACTIONS (2)
  - Drug ineffective [Fatal]
  - Disease progression [Fatal]
